FAERS Safety Report 15810871 (Version 5)
Quarter: 2020Q3

REPORT INFORMATION
  Report Type: Other
  Country: DE (occurrence: DE)
  Receive Date: 20190111
  Receipt Date: 20200729
  Transmission Date: 20201102
  Serious: No
  Sender: FDA-Public Use
  Company Number: DE-ROCHE-2244226

PATIENT
  Age: 39 Year
  Sex: Female

DRUGS (4)
  1. NEUREXAN [Concomitant]
     Active Substance: HOMEOPATHICS
  2. OCREVUS [Suspect]
     Active Substance: OCRELIZUMAB
     Route: 042
     Dates: start: 20191022
  3. OCREVUS [Suspect]
     Active Substance: OCRELIZUMAB
     Indication: RELAPSING-REMITTING MULTIPLE SCLEROSIS
     Route: 042
     Dates: start: 20181010
  4. OCREVUS [Suspect]
     Active Substance: OCRELIZUMAB
     Route: 042
     Dates: start: 20190404

REACTIONS (12)
  - Blood pressure increased [Recovered/Resolved]
  - Tachycardia [Recovered/Resolved]
  - Oropharyngeal pain [Recovered/Resolved]
  - Sinusitis [Recovered/Resolved]
  - Heart rate increased [Recovered/Resolved]
  - Nasopharyngitis [Recovered/Resolved]
  - Infection susceptibility increased [Recovered/Resolved]
  - Anxiety [Recovered/Resolved]
  - Middle ear inflammation [Recovered/Resolved]
  - Gastrointestinal infection [Recovered/Resolved]
  - Restlessness [Recovered/Resolved]
  - Cough [Recovered/Resolved]

NARRATIVE: CASE EVENT DATE: 20181105
